FAERS Safety Report 10079253 (Version 4)
Quarter: 2014Q3

REPORT INFORMATION
  Report Type: Spontaneous
  Country: US (occurrence: US)
  Receive Date: 20140415
  Receipt Date: 20140703
  Transmission Date: 20150326
  Serious: Yes (Other)
  Sender: FDA-Public Use
  Company Number: CHPA2014US005214

PATIENT
  Age: 91 Year
  Sex: Female

DRUGS (1)
  1. VOLTAREN [Suspect]
     Active Substance: DICLOFENAC SODIUM
     Indication: ARTHRITIS
     Dosage: UNK, TID
     Route: 061

REACTIONS (3)
  - Arthritis [Unknown]
  - Urinary tract infection [Recovered/Resolved]
  - Inappropriate schedule of drug administration [Unknown]
